FAERS Safety Report 6111229-9 (Version None)
Quarter: 2009Q1

REPORT INFORMATION
  Report Type: 
  Country: None (occurrence: None)
  Receive Date: 20090311
  Receipt Date: 20090304
  Transmission Date: 20090719
  Serious: Yes (Other)
  Sender: FDA-Public Use
  Company Number: US-ALLERGAN-0902937US

PATIENT
  Sex: Female

DRUGS (3)
  1. BOTOX [Suspect]
     Indication: MUSCLE SPASTICITY
     Dosage: UNK, SINGLE
     Route: 030
  2. BOTOX [Suspect]
     Dosage: UNK, SINGLE
     Route: 030
  3. BOTOX [Suspect]
     Dosage: UNK, SINGLE
     Route: 030

REACTIONS (1)
  - DEEP VEIN THROMBOSIS [None]
